FAERS Safety Report 25558275 (Version 1)
Quarter: 2025Q3

REPORT INFORMATION
  Report Type: Spontaneous
  Country: US (occurrence: US)
  Receive Date: 20250715
  Receipt Date: 20250715
  Transmission Date: 20251020
  Serious: Yes (Other)
  Sender: NOVO NORDISK
  Company Number: US-NOVOPROD-1432588

PATIENT
  Age: 20 Year
  Sex: Female

DRUGS (1)
  1. OZEMPIC [Suspect]
     Active Substance: SEMAGLUTIDE
     Indication: Product used for unknown indication
     Dosage: 0.5 MG, QW
     Dates: start: 202502

REACTIONS (4)
  - Anaphylactic reaction [Unknown]
  - Arthropod bite [Unknown]
  - Food allergy [Unknown]
  - Asthma [Unknown]

NARRATIVE: CASE EVENT DATE: 20250401
